FAERS Safety Report 20542250 (Version 4)
Quarter: 2022Q2

REPORT INFORMATION
  Report Type: Spontaneous
  Country: US (occurrence: US)
  Receive Date: 20220302
  Receipt Date: 20220516
  Transmission Date: 20220720
  Serious: Yes (Hospitalization, Other)
  Sender: FDA-Public Use
  Company Number: US-PPDUS-2022ST000027

PATIENT
  Sex: Male

DRUGS (3)
  1. ELZONRIS [Suspect]
     Active Substance: TAGRAXOFUSP-ERZS
     Indication: Blastic plasmacytoid dendritic cell neoplasia
     Dosage: FIRST CYCLE
     Route: 042
     Dates: start: 202201
  2. ELZONRIS [Suspect]
     Active Substance: TAGRAXOFUSP-ERZS
     Dosage: SECOND CYCLE
     Route: 042
     Dates: start: 202202
  3. ELZONRIS [Suspect]
     Active Substance: TAGRAXOFUSP-ERZS
     Dosage: THIRD CYCLE
     Route: 042
     Dates: start: 2022

REACTIONS (3)
  - Neurotoxicity [Unknown]
  - Facial paralysis [Recovered/Resolved]
  - Abdominal pain [Recovered/Resolved]
